FAERS Safety Report 9751457 (Version 1)
Quarter: 2013Q4

REPORT INFORMATION
  Report Type: Spontaneous
  Country: FR (occurrence: FR)
  Receive Date: 20131212
  Receipt Date: 20131212
  Transmission Date: 20140711
  Serious: Yes (Hospitalization, Other)
  Sender: FDA-Public Use
  Company Number: FR-BAXTER-2013BAX048625

PATIENT
  Age: 34 Year
  Sex: Female

DRUGS (16)
  1. RINGER LACTATE VIAFLO, SOLUTION POUR PERFUSION [Suspect]
     Indication: POSTPARTUM HAEMORRHAGE
     Route: 042
     Dates: start: 20130826
  2. RINGER LACTATE VIAFLO, SOLUTION POUR PERFUSION [Suspect]
     Indication: FLUID REPLACEMENT
  3. EXACYL [Suspect]
     Indication: POSTPARTUM HAEMORRHAGE
     Route: 042
     Dates: start: 20130826, end: 20130826
  4. EXACYL [Suspect]
     Indication: FLUID REPLACEMENT
  5. NALADOR [Suspect]
     Indication: POSTPARTUM HAEMORRHAGE
     Dosage: 2 AMPULS
     Route: 042
     Dates: start: 20130826, end: 20130826
  6. NALADOR [Suspect]
     Indication: FLUID REPLACEMENT
  7. SYNTOCINON [Suspect]
     Indication: POSTPARTUM HAEMORRHAGE
     Route: 042
     Dates: start: 20130826, end: 20130826
  8. SYNTOCINON [Suspect]
     Indication: FLUID REPLACEMENT
  9. CLOTTAFACT [Suspect]
     Indication: POSTPARTUM HAEMORRHAGE
     Route: 042
     Dates: start: 20130826, end: 20130826
  10. CLOTTAFACT [Suspect]
     Indication: FLUID REPLACEMENT
  11. VOLUVEN [Suspect]
     Indication: POSTPARTUM HAEMORRHAGE
     Route: 042
     Dates: start: 20130826, end: 20130826
  12. VOLUVEN [Suspect]
     Indication: FLUID REPLACEMENT
  13. LEVEMIR [Suspect]
     Indication: PRODUCT USED FOR UNKNOWN INDICATION
  14. ASPEGIC [Suspect]
     Indication: PRODUCT USED FOR UNKNOWN INDICATION
     Route: 065
     Dates: end: 20130825
  15. LEVEMIR [Concomitant]
     Indication: PRODUCT USED FOR UNKNOWN INDICATION
     Route: 065
  16. LEVEMIR [Concomitant]
     Route: 065

REACTIONS (6)
  - Renal failure acute [Not Recovered/Not Resolved]
  - Pulmonary oedema [Unknown]
  - Pulmonary embolism [Unknown]
  - Renal tubular necrosis [Unknown]
  - Alveolar lung disease [Unknown]
  - Abdominal pain [Unknown]
